FAERS Safety Report 8599742-6 (Version None)
Quarter: 2012Q3

REPORT INFORMATION
  Report Type: 
  Country: None (occurrence: None)
  Receive Date: 20120816
  Receipt Date: 20120814
  Transmission Date: 20120928
  Serious: Yes (Hospitalization)
  Sender: FDA-Public Use
  Company Number: US-GILEAD-2012-0057629

PATIENT
  Sex: Female

DRUGS (1)
  1. LETAIRIS [Suspect]
     Indication: PRODUCT USED FOR UNKNOWN INDICATION
     Dosage: 10 MG, UNK
     Route: 048
     Dates: start: 20120430

REACTIONS (5)
  - UNEVALUABLE EVENT [None]
  - OXYGEN CONSUMPTION [None]
  - LOCALISED INTRAABDOMINAL FLUID COLLECTION [None]
  - OEDEMA PERIPHERAL [None]
  - GASTRIC DISORDER [None]
